FAERS Safety Report 5061481-6 (Version None)
Quarter: 2006Q3

REPORT INFORMATION
  Report Type: 
  Country: None (occurrence: None)
  Receive Date: 20060703
  Receipt Date: 20060418
  Transmission Date: 20061208
  Serious: No
  Sender: FDA-Public Use
  Company Number: 2006PV012259

PATIENT
  Sex: Female

DRUGS (2)
  1. SYMLIN [Suspect]
     Indication: DRUG USE FOR UNKNOWN INDICATION
     Dosage: 60 MCG;SC
     Route: 058
  2. INSULIN [Concomitant]

REACTIONS (2)
  - MEDICATION ERROR [None]
  - NAUSEA [None]
